FAERS Safety Report 17562767 (Version 7)
Quarter: 2020Q3

REPORT INFORMATION
  Report Type: Report from Study
  Country: US (occurrence: US)
  Receive Date: 20200319
  Receipt Date: 20200720
  Transmission Date: 20201102
  Serious: Yes (Death, Hospitalization)
  Sender: FDA-Public Use
  Company Number: US-ACTELION-A-US2016-131413

PATIENT
  Age: 77 Year
  Sex: Female
  Weight: 42.63 kg

DRUGS (10)
  1. REMODULIN [Suspect]
     Active Substance: TREPROSTINIL
     Dosage: 2.5 MG/ML
     Route: 042
     Dates: start: 20200419
  2. REMODULIN [Suspect]
     Active Substance: TREPROSTINIL
     Indication: PRODUCT USED FOR UNKNOWN INDICATION
     Dosage: UNK
     Route: 065
     Dates: start: 201610
  3. REMODULIN [Suspect]
     Active Substance: TREPROSTINIL
     Dosage: 1 MG/ML
     Route: 042
     Dates: end: 20200419
  4. OPSUMIT [Suspect]
     Active Substance: MACITENTAN
     Indication: PULMONARY ARTERIAL HYPERTENSION
     Dosage: 10 MG, QD
     Route: 048
     Dates: start: 20151109
  5. SILDENAFIL. [Concomitant]
     Active Substance: SILDENAFIL
  6. REVATIO [Concomitant]
     Active Substance: SILDENAFIL CITRATE
  7. OPSUMIT [Suspect]
     Active Substance: MACITENTAN
     Dosage: 10 MG, QD
     Route: 048
     Dates: start: 20151109
  8. REMODULIN [Suspect]
     Active Substance: TREPROSTINIL
     Dosage: 64 NG/KG, PER MIN
     Route: 042
  9. PLAVIX [Concomitant]
     Active Substance: CLOPIDOGREL BISULFATE
  10. DILTIAZEM. [Concomitant]
     Active Substance: DILTIAZEM

REACTIONS (39)
  - Memory impairment [Unknown]
  - Rash erythematous [Unknown]
  - Sinusitis [Unknown]
  - Heart rate increased [Recovered/Resolved]
  - Arrhythmia [Recovered/Resolved]
  - Constipation [Unknown]
  - Skin irritation [Unknown]
  - Fractured coccyx [Unknown]
  - Fall [Unknown]
  - Secretion discharge [Unknown]
  - Dizziness [Recovered/Resolved]
  - Mental impairment [Unknown]
  - Peripheral swelling [Unknown]
  - Mitral valve repair [Unknown]
  - Limb discomfort [Unknown]
  - Pain in extremity [Unknown]
  - Physical disability [Unknown]
  - Diarrhoea [Unknown]
  - Dyspnoea [Unknown]
  - Asthenia [Not Recovered/Not Resolved]
  - Fluid overload [Unknown]
  - Nasal congestion [Unknown]
  - Malaise [Unknown]
  - Pain in jaw [Unknown]
  - Unevaluable event [Unknown]
  - Abdominal discomfort [Unknown]
  - Gait disturbance [Not Recovered/Not Resolved]
  - Nausea [Unknown]
  - Right ventricular failure [Fatal]
  - Syncope [Unknown]
  - Dyspnoea exertional [Unknown]
  - Influenza [Unknown]
  - Device occlusion [Unknown]
  - Catheterisation cardiac [Unknown]
  - Muscle spasms [Unknown]
  - Condition aggravated [Recovered/Resolved]
  - Anxiety [Unknown]
  - Dyspnoea at rest [Unknown]
  - Palpitations [Unknown]

NARRATIVE: CASE EVENT DATE: 201901
